FAERS Safety Report 10024452 (Version 1)
Quarter: 2014Q1

REPORT INFORMATION
  Report Type: Spontaneous
  Country: US (occurrence: US)
  Receive Date: 20140320
  Receipt Date: 20140320
  Transmission Date: 20141002
  Serious: No
  Sender: FDA-Public Use
  Company Number: US-ENDO PHARMACEUTICALS INC.-OPCR20140082

PATIENT
  Age: 72 Year
  Sex: Male

DRUGS (3)
  1. OPANA ER 7.5MG [Suspect]
     Indication: BACK PAIN
     Route: 048
     Dates: start: 2014
  2. OXYCODONE HCL 15MG [Suspect]
     Indication: BREAKTHROUGH PAIN
     Route: 048
  3. OPANA ER 5MG [Concomitant]
     Route: 048
     Dates: start: 201312, end: 2014

REACTIONS (3)
  - Constipation [Not Recovered/Not Resolved]
  - Drug ineffective [Not Recovered/Not Resolved]
  - Drug effect decreased [Not Recovered/Not Resolved]
